FAERS Safety Report 25319329 (Version 2)
Quarter: 2025Q2

REPORT INFORMATION
  Report Type: Other
  Country: US (occurrence: US)
  Receive Date: 20250515
  Receipt Date: 20250623
  Transmission Date: 20250716
  Serious: No
  Sender: APOTEX
  Company Number: US-APOTEX-2025AP005035

PATIENT

DRUGS (1)
  1. IBANDRONATE SODIUM [Suspect]
     Active Substance: IBANDRONATE SODIUM
     Indication: Product used for unknown indication
     Route: 065

REACTIONS (4)
  - Device issue [Unknown]
  - Drug delivery system malfunction [Unknown]
  - Drug dose omission by device [Unknown]
  - Product availability issue [Unknown]
